FAERS Safety Report 6905756-1 (Version None)
Quarter: 2010Q3

REPORT INFORMATION
  Report Type: 
  Country: None (occurrence: None)
  Receive Date: 20100730
  Receipt Date: 20100715
  Transmission Date: 20110219
  Serious: Yes (Other)
  Sender: FDA-Public Use
  Company Number: 2010002987

PATIENT
  Sex: Male

DRUGS (2)
  1. ERLOTINIB HYDROCHLORIDE [Suspect]
     Indication: ADENOCARCINOMA PANCREAS
     Dosage: (100 MG, QD)
     Dates: start: 20100222
  2. GEMCITABINE [Suspect]
     Indication: ADENOCARCINOMA PANCREAS
     Dosage: (1000 MG/M2, DAYS 1, 8 15 OF 28 DAY CYCLE), INTRAVENOUS
     Route: 042
     Dates: start: 20100222

REACTIONS (1)
  - NEUTROPHIL COUNT DECREASED [None]
